FAERS Safety Report 23906370 (Version 1)
Quarter: 2024Q2

REPORT INFORMATION
  Report Type: Spontaneous
  Country: US (occurrence: US)
  Receive Date: 20240528
  Receipt Date: 20240528
  Transmission Date: 20240716
  Serious: No
  Sender: FDA-Public Use
  Company Number: US-SA-SAC20240522000633

PATIENT
  Age: 53 Year
  Sex: Male

DRUGS (2)
  1. DUPIXENT [Suspect]
     Active Substance: DUPILUMAB
     Indication: Chronic rhinosinusitis with nasal polyps
     Dosage: 600 MG, 1X
     Route: 058
     Dates: start: 20240315, end: 20240315
  2. DUPIXENT [Suspect]
     Active Substance: DUPILUMAB
     Indication: Nasal polyps
     Dosage: 300 MG, QOW
     Route: 058
     Dates: start: 202403

REACTIONS (6)
  - Conjunctivitis [Recovering/Resolving]
  - Eye pruritus [Recovering/Resolving]
  - Condition aggravated [Recovering/Resolving]
  - Lacrimation increased [Recovering/Resolving]
  - Ocular hyperaemia [Recovering/Resolving]
  - Extra dose administered [Unknown]

NARRATIVE: CASE EVENT DATE: 20240315
